FAERS Safety Report 9036448 (Version 1)
Quarter: 2013Q1

REPORT INFORMATION
  Report Type: Report from Study
  Country: US (occurrence: US)
  Receive Date: 20130129
  Receipt Date: 20130129
  Transmission Date: 20140127
  Serious: No
  Sender: FDA-Public Use
  Company Number: US-ABBOTT-12P-163-0892834-00

PATIENT
  Age: 44 Year
  Sex: Female

DRUGS (10)
  1. HUMIRA 40 MG/0.8 ML PEN [Suspect]
     Indication: CROHN^S DISEASE
     Dates: start: 20111103, end: 201112
  2. HUMIRA 40 MG/0.8 ML PEN [Suspect]
     Dates: start: 201112
  3. PREDNISONE [Concomitant]
     Indication: PRODUCT USED FOR UNKNOWN INDICATION
  4. METHOTREXATE [Concomitant]
     Indication: PRODUCT USED FOR UNKNOWN INDICATION
  5. GENERIC BACTRIM [Concomitant]
     Indication: PRODUCT USED FOR UNKNOWN INDICATION
  6. PROTONIX [Concomitant]
     Indication: PRODUCT USED FOR UNKNOWN INDICATION
  7. CALCIUM [Concomitant]
     Indication: PRODUCT USED FOR UNKNOWN INDICATION
  8. FOLATE [Concomitant]
     Indication: PRODUCT USED FOR UNKNOWN INDICATION
  9. SULFASALAZINE [Concomitant]
     Indication: PRODUCT USED FOR UNKNOWN INDICATION
  10. ASACOL [Concomitant]
     Indication: PRODUCT USED FOR UNKNOWN INDICATION
     Dates: end: 201112

REACTIONS (3)
  - Musculoskeletal disorder [Recovering/Resolving]
  - Gastrointestinal disorder [Recovering/Resolving]
  - Drug effect decreased [Recovering/Resolving]
